FAERS Safety Report 20297485 (Version 1)
Quarter: 2022Q1

REPORT INFORMATION
  Report Type: Spontaneous
  Country: US (occurrence: None)
  Receive Date: 20220105
  Receipt Date: 20220105
  Transmission Date: 20220423
  Serious: No
  Sender: FDA-Public Use
  Company Number: 2021A869717

PATIENT
  Age: 22268 Day
  Sex: Female
  Weight: 95.3 kg

DRUGS (6)
  1. SAPHNELO [Suspect]
     Active Substance: ANIFROLUMAB-FNIA
     Indication: Systemic lupus erythematosus
     Dosage: EVERY FOUR WEEKS
     Route: 042
     Dates: start: 20211209
  2. PEPCID [Concomitant]
     Active Substance: FAMOTIDINE
     Indication: Abdominal pain upper
  3. TRAMADOL [Concomitant]
     Active Substance: TRAMADOL
     Indication: Abdominal pain upper
  4. CELLCEPT [Concomitant]
     Active Substance: MYCOPHENOLATE MOFETIL
     Indication: Abdominal pain upper
  5. HYDROXYCHLOROQUINE [Concomitant]
     Active Substance: HYDROXYCHLOROQUINE
     Indication: Abdominal pain upper
  6. TRAZODONE [Concomitant]
     Active Substance: TRAZODONE HYDROCHLORIDE
     Indication: Abdominal pain upper

REACTIONS (3)
  - Hypertension [Not Recovered/Not Resolved]
  - Heart rate abnormal [Unknown]
  - Headache [Recovering/Resolving]

NARRATIVE: CASE EVENT DATE: 20211209
